FAERS Safety Report 5802478-5 (Version None)
Quarter: 2008Q3

REPORT INFORMATION
  Report Type: 
  Country: None (occurrence: None)
  Receive Date: 20080708
  Receipt Date: 20080704
  Transmission Date: 20090109
  Serious: Yes (Life-Threatening)
  Sender: FDA-Public Use
  Company Number: GB-RANBAXY-2008RR-16207

PATIENT

DRUGS (7)
  1. CODEINE SUL TAB [Suspect]
     Indication: PAIN
     Dosage: 30 MG, UNK
     Route: 048
     Dates: start: 20080614, end: 20080614
  2. AMITRYPTILINE HYDROCHLORIDE [Concomitant]
     Indication: NEURALGIA
     Dosage: 25 MG, QID
  3. ACETAMINOPHEN W/ CODEINE [Concomitant]
     Indication: PAIN
     Dosage: 2 DF, QID
  4. GLIMEPIRIDE [Concomitant]
     Indication: TYPE 2 DIABETES MELLITUS
     Dosage: 3 MG, BID
  5. PAROXETINE HCL [Concomitant]
     Indication: DEPRESSION
     Dosage: 20 MG, BID
  6. PERINDOPRIL ERBUMINE [Concomitant]
     Indication: BLOOD PRESSURE INCREASED
     Dosage: 4 MG, QD
  7. ROSIGLITAZONE [Concomitant]
     Indication: DIABETES MELLITUS
     Dosage: 4 MG, QD

REACTIONS (1)
  - SWOLLEN TONGUE [None]
